FAERS Safety Report 16667405 (Version 1)
Quarter: 2019Q3

REPORT INFORMATION
  Report Type: Spontaneous
  Country: US (occurrence: US)
  Receive Date: 20190805
  Receipt Date: 20190805
  Transmission Date: 20191004
  Serious: Yes (Other)
  Sender: FDA-Public Use
  Company Number: US-STRIDES ARCOLAB LIMITED-2019SP006338

PATIENT
  Age: 22 Month
  Sex: Female

DRUGS (1)
  1. CLARITHROMYCIN. [Suspect]
     Active Substance: CLARITHROMYCIN
     Indication: LYMPHADENITIS BACTERIAL
     Dosage: 15 MG/KG DAILY
     Route: 065

REACTIONS (1)
  - Deafness [Unknown]
